FAERS Safety Report 8012827-8 (Version None)
Quarter: 2011Q4

REPORT INFORMATION
  Report Type: 
  Country: None (occurrence: None)
  Receive Date: 20111229
  Receipt Date: 20111220
  Transmission Date: 20120403
  Serious: Yes (Other)
  Sender: FDA-Public Use
  Company Number: DE-BRISTOL-MYERS SQUIBB COMPANY-15676398

PATIENT
  Age: 37 Year
  Sex: Female

DRUGS (1)
  1. BARACLUDE [Suspect]
     Indication: HEPATITIS B
     Dosage: FIRST LINE THERAPY,CONTINUING 5MG
     Route: 048
     Dates: start: 20090129

REACTIONS (2)
  - ABORTION SPONTANEOUS [None]
  - PREGNANCY [None]
